FAERS Safety Report 10084106 (Version 1)
Quarter: 2014Q2

REPORT INFORMATION
  Report Type: Spontaneous
  Country: IT (occurrence: None)
  Receive Date: 20140415
  Receipt Date: 20140415
  Transmission Date: 20141212
  Serious: Yes (Death)
  Sender: FDA-Public Use
  Company Number: COR_00043_2014

PATIENT
  Age: 5 Month
  Sex: Male

DRUGS (4)
  1. CARBOPLATIN (CARBOPLATIN) [Suspect]
     Indication: GLIOMA
     Dosage: INDUCTION CUMULATIVE DOSE 46.4 MG/KG, MAINTERNANCE 700 MG/M2
  2. CARBOPLATIN (CARBOPLATIN) [Suspect]
     Indication: CENTRAL NERVOUS SYSTEM LESION
     Dosage: INDUCTION CUMULATIVE DOSE 46.4 MG/KG, MAINTERNANCE 700 MG/M2
  3. CISPLATIN (CISPLATIN) [Suspect]
     Indication: GLIOMA
     Dosage: CUMULATIVE DOSE 1600 MG/M2
  4. CISPLATIN (CISPLATIN) [Suspect]
     Indication: CENTRAL NERVOUS SYSTEM LESION
     Dosage: CUMULATIVE DOSE 1600 MG/M2

REACTIONS (4)
  - Inappropriate antidiuretic hormone secretion [None]
  - Hypoacusis [None]
  - Malignant neoplasm progression [None]
  - Glioma [None]
